FAERS Safety Report 13228990 (Version 1)
Quarter: 2017Q1

REPORT INFORMATION
  Report Type: Spontaneous
  Country: US (occurrence: US)
  Receive Date: 20170213
  Receipt Date: 20170213
  Transmission Date: 20170428
  Serious: Yes (Other)
  Sender: FDA-Public Use
  Company Number: US-STRIDES ARCOLAB LIMITED-2016SP018416

PATIENT

DRUGS (1)
  1. TACROLIMUS. [Suspect]
     Active Substance: TACROLIMUS
     Indication: LIVER TRANSPLANT
     Dosage: UNK

REACTIONS (6)
  - Skin mass [Unknown]
  - Post transplant lymphoproliferative disorder [Unknown]
  - Skin necrosis [Unknown]
  - Papule [Unknown]
  - Pain of skin [Unknown]
  - Erythema [Unknown]
